FAERS Safety Report 7568117-0 (Version None)
Quarter: 2011Q2

REPORT INFORMATION
  Report Type: 
  Country: None (occurrence: None)
  Receive Date: 20110623
  Receipt Date: 20110617
  Transmission Date: 20111010
  Serious: Yes (Other)
  Sender: FDA-Public Use
  Company Number: US-SANOFI-AVENTIS-2011SA038733

PATIENT
  Age: 66 Year
  Sex: Male

DRUGS (1)
  1. LANTUS [Suspect]
     Indication: TYPE 2 DIABETES MELLITUS
     Dosage: 80 UNITS, 30 UNITS AND 80 UNITS
     Route: 058

REACTIONS (2)
  - THYROID CANCER [None]
  - CORONARY ARTERIAL STENT INSERTION [None]
